FAERS Safety Report 22041684 (Version 1)
Quarter: 2023Q1

REPORT INFORMATION
  Report Type: Spontaneous
  Country: CA (occurrence: CA)
  Receive Date: 20230227
  Receipt Date: 20230227
  Transmission Date: 20230418
  Serious: Yes (Other)
  Sender: FDA-Public Use
  Company Number: None

PATIENT
  Age: 35 Year
  Sex: Female

DRUGS (4)
  1. MORPHINE SULFATE [Suspect]
     Active Substance: MORPHINE SULFATE
     Indication: Anaesthesia procedure
     Dosage: 0.1 MILLIGRAM
     Route: 065
  2. FENTANYL [Suspect]
     Active Substance: FENTANYL
     Indication: Anaesthesia procedure
     Dosage: 15 MCG
     Route: 065
  3. BUPIVACAINE HYDROCHLORIDE [Suspect]
     Active Substance: BUPIVACAINE HYDROCHLORIDE
     Indication: Anaesthesia procedure
     Dosage: 1.5 MILLILITER (SOLUTION INTRASPINAL))
     Route: 008
  4. BUPIVACAINE HYDROCHLORIDE [Suspect]
     Active Substance: BUPIVACAINE HYDROCHLORIDE
     Dosage: 1.5 MILLILITER
     Route: 008

REACTIONS (5)
  - Bradycardia [Recovered/Resolved]
  - Cardiac arrest [Recovered/Resolved]
  - Drug ineffective [Recovered/Resolved]
  - Exposure during pregnancy [Recovered/Resolved]
  - Hypotension [Recovered/Resolved]
